FAERS Safety Report 18417614 (Version 1)
Quarter: 2020Q4

REPORT INFORMATION
  Report Type: Spontaneous
  Country: US (occurrence: US)
  Receive Date: 20201023
  Receipt Date: 20201023
  Transmission Date: 20210114
  Serious: No
  Sender: FDA-Public Use
  Company Number: US-SA-2020SA297175

PATIENT

DRUGS (13)
  1. GARLIC [ALLIUM SATIVUM] [Concomitant]
     Active Substance: GARLIC
  2. HYDROCORTISONE. [Concomitant]
     Active Substance: HYDROCORTISONE
  3. DUPIXENT [Suspect]
     Active Substance: DUPILUMAB
     Indication: DERMATITIS ATOPIC
     Dosage: 300 MG, QOW
     Route: 058
  4. GLUCOSAMINE [Concomitant]
     Active Substance: GLUCOSAMINE
  5. GINSENG [PANAX GINSENG] [Concomitant]
  6. VITAMIN B12 [Concomitant]
     Active Substance: CYANOCOBALAMIN
     Route: 048
  7. METOPROLOL SUCCINATE. [Concomitant]
     Active Substance: METOPROLOL SUCCINATE
  8. VITAMIN C [Concomitant]
     Active Substance: ASCORBIC ACID
  9. HYDROXYZINE HCL [Concomitant]
     Active Substance: HYDROXYZINE HYDROCHLORIDE
  10. METFORMIN ER [Concomitant]
     Active Substance: METFORMIN HYDROCHLORIDE
  11. MULTI BETIC [Concomitant]
  12. GLIPIZIDE. [Concomitant]
     Active Substance: GLIPIZIDE
  13. CRESTOR [Concomitant]
     Active Substance: ROSUVASTATIN CALCIUM

REACTIONS (1)
  - Pruritus [Not Recovered/Not Resolved]
